FAERS Safety Report 6904596-7 (Version None)
Quarter: 2010Q3

REPORT INFORMATION
  Report Type: 
  Country: None (occurrence: None)
  Receive Date: 20100804
  Receipt Date: 20090616
  Transmission Date: 20110219
  Serious: No
  Sender: FDA-Public Use
  Company Number: US-PFIZER INC-2009192667

PATIENT

DRUGS (1)
  1. LYRICA [Suspect]
     Dosage: 250MG/DAY

REACTIONS (1)
  - VISION BLURRED [None]
